FAERS Safety Report 15291606 (Version 2)
Quarter: 2018Q3

REPORT INFORMATION
  Report Type: Spontaneous
  Country: FR (occurrence: FR)
  Receive Date: 20180817
  Receipt Date: 20180823
  Transmission Date: 20181010
  Serious: Yes (Life-Threatening)
  Sender: FDA-Public Use
  Company Number: FR-PFIZER INC-2018332765

PATIENT
  Age: 85 Year
  Sex: Male
  Weight: 78 kg

DRUGS (5)
  1. CORDARONE [Suspect]
     Active Substance: AMIODARONE HYDROCHLORIDE
     Indication: ATRIAL FIBRILLATION
     Dosage: 1 DF, ALTERNATE DAY (1 DOSAGE FORM EVERY OTHER DAY)
     Route: 048
     Dates: start: 201502, end: 20180608
  2. AUGMENTIN [Suspect]
     Active Substance: AMOXICILLIN\CLAVULANATE POTASSIUM
     Indication: ARTHRITIS INFECTIVE
     Dosage: 3 G, DAILY
     Route: 048
     Dates: start: 20180520, end: 20180526
  3. HYTACAND [Concomitant]
     Active Substance: CANDESARTAN CILEXETIL\HYDROCHLOROTHIAZIDE
     Dosage: UNK
  4. TEMERIT [Concomitant]
     Active Substance: NEBIVOLOL
     Dosage: UNK
  5. AMLOR [Concomitant]
     Active Substance: AMLODIPINE BESYLATE
     Dosage: UNK

REACTIONS (5)
  - Cholestasis [Recovering/Resolving]
  - Cholestatic pruritus [Recovered/Resolved]
  - Jaundice [Recovered/Resolved]
  - Hepatocellular injury [Recovering/Resolving]
  - Hepatitis cholestatic [Recovering/Resolving]

NARRATIVE: CASE EVENT DATE: 20180602
